FAERS Safety Report 8375572-5 (Version None)
Quarter: 2012Q1

REPORT INFORMATION
  Report Type: 
  Country: None (occurrence: None)
  Receive Date: 20120323
  Receipt Date: 20110323
  Transmission Date: 20120608
  Serious: Yes (Hospitalization)
  Sender: FDA-Public Use
  Company Number: 163-21880-11020477

PATIENT
  Age: 63 Year
  Sex: Male

DRUGS (13)
  1. REVLIMID [Suspect]
     Indication: MULTIPLE MYELOMA
     Dosage: SEE IMAGE PO
     Route: 048
     Dates: start: 20110131, end: 20110201
  2. REVLIMID [Suspect]
     Indication: MULTIPLE MYELOMA
     Dosage: SEE IMAGE PO
     Route: 048
     Dates: start: 20110101
  3. REVLIMID [Suspect]
     Indication: MULTIPLE MYELOMA
     Dosage: SEE IMAGE PO
     Route: 048
     Dates: start: 20101129, end: 20101216
  4. NEURONTIN [Concomitant]
  5. NEXIUM [Concomitant]
  6. OXYCONTIN [Concomitant]
  7. HYDROCODONE/ APAP (PROCET) [Concomitant]
  8. CITALOPRAM HYDROBROMIDE [Concomitant]
  9. TRAZODONE HCL [Concomitant]
  10. LOVENOX [Concomitant]
  11. COUMADIN [Concomitant]
  12. SYNTHROID [Concomitant]
  13. XANAX [Concomitant]

REACTIONS (3)
  - PULMONARY EMBOLISM [None]
  - MALAISE [None]
  - PLATELET COUNT DECREASED [None]
